FAERS Safety Report 7286920-1 (Version None)
Quarter: 2011Q1

REPORT INFORMATION
  Report Type: 
  Country: None (occurrence: None)
  Receive Date: 20110211
  Receipt Date: 20110201
  Transmission Date: 20110831
  Serious: Yes (Other)
  Sender: FDA-Public Use
  Company Number: US-BIOGENIDEC-2011BI004739

PATIENT
  Sex: Female

DRUGS (2)
  1. TYSABRI [Suspect]
     Indication: MULTIPLE SCLEROSIS
     Route: 042
     Dates: start: 20090512, end: 20101102
  2. TYSABRI [Suspect]
     Route: 042
     Dates: start: 20080501, end: 20090320

REACTIONS (2)
  - MULTIPLE SCLEROSIS RELAPSE [None]
  - CONVULSION [None]
